FAERS Safety Report 6923446-6 (Version None)
Quarter: 2010Q3

REPORT INFORMATION
  Report Type: 
  Country: None (occurrence: None)
  Receive Date: 20100813
  Receipt Date: 20100809
  Transmission Date: 20110219
  Serious: Yes (Hospitalization, Other)
  Sender: FDA-Public Use
  Company Number: US-CEPHALON-2010003961

PATIENT
  Sex: Female
  Weight: 90 kg

DRUGS (14)
  1. TREANDA [Suspect]
     Indication: B-CELL LYMPHOMA
     Route: 042
     Dates: start: 20100628, end: 20100629
  2. RITUXAN [Suspect]
     Indication: B-CELL LYMPHOMA
     Route: 042
     Dates: start: 20100628, end: 20100628
  3. RESTORIL [Concomitant]
     Indication: INSOMNIA
     Dates: start: 20100622
  4. METOFORMIN [Concomitant]
     Indication: DIABETES MELLITUS
     Dates: start: 20070101
  5. CRESTOR [Concomitant]
     Indication: HYPERLIPIDAEMIA
     Dates: start: 20090101
  6. NITROGLYCERIN [Concomitant]
     Indication: ATRIAL FIBRILLATION
     Dates: start: 20090101
  7. SLOW MAG [Concomitant]
     Indication: MEDICAL DIET
     Dates: start: 20080101
  8. COUMADIN [Concomitant]
     Indication: ATRIAL FIBRILLATION
     Dates: start: 20070101
  9. CELEXA [Concomitant]
     Indication: DEPRESSION
     Dates: start: 20100501
  10. PROTONIX [Concomitant]
     Indication: DYSPEPSIA
     Dates: start: 20070101
  11. FOLIC ACID [Concomitant]
     Indication: PROPHYLAXIS
     Dates: start: 20100501
  12. ALLOPURINOL [Concomitant]
     Indication: NEOPLASM PROPHYLAXIS
     Dates: start: 20100501
  13. HYDROCODONE BITARTRATE [Concomitant]
     Indication: PAIN
     Dates: start: 20100601
  14. LEVEMIR [Concomitant]
     Indication: DIABETES MELLITUS
     Dates: start: 20100630

REACTIONS (3)
  - DIARRHOEA [None]
  - FATIGUE [None]
  - PANCYTOPENIA [None]
